FAERS Safety Report 25675979 (Version 2)
Quarter: 2025Q3

REPORT INFORMATION
  Report Type: Spontaneous
  Country: US (occurrence: US)
  Receive Date: 20250813
  Receipt Date: 20250829
  Transmission Date: 20251020
  Serious: Yes (Hospitalization)
  Sender: TEVA
  Company Number: US-TEVA-VS-3360455

PATIENT
  Age: 18 Year
  Sex: Female

DRUGS (1)
  1. VINCRISTINE [Suspect]
     Active Substance: VINCRISTINE
     Indication: Acute leukaemia
     Dosage: INTRAVENOUS (NOT OTHERWISE SPECIFIED)  CAPPED AT 2 MG/DOSE, FOUR WEEKLY DOSES
     Route: 042

REACTIONS (1)
  - Autonomic neuropathy [Recovering/Resolving]
